FAERS Safety Report 24374169 (Version 2)
Quarter: 2024Q3

REPORT INFORMATION
  Report Type: Spontaneous
  Country: GB (occurrence: GB)
  Receive Date: 20240927
  Receipt Date: 20240930
  Transmission Date: 20241017
  Serious: Yes (Hospitalization, Other)
  Sender: PFIZER
  Company Number: GB-MLMSERVICE-20240916-PI195370-00158-1

PATIENT
  Age: 4 Decade
  Sex: Female

DRUGS (7)
  1. OXALIPLATIN [Suspect]
     Active Substance: OXALIPLATIN
     Indication: Signet-ring cell carcinoma
     Dosage: PATIENT RECEIVED 3 CYCLES OF OXALIPLATIN COURSE OF 2 CHEMOTHERAPY AGENTS FOR 6 MONTHS.
  2. OXALIPLATIN [Suspect]
     Active Substance: OXALIPLATIN
     Indication: Adenocarcinoma of colon
  3. FLUOROURACIL [Suspect]
     Active Substance: FLUOROURACIL
     Indication: Signet-ring cell carcinoma
     Dosage: PATIENT RECEIVED 3 CYCLES OF FLUOROURACIL COURSE OF 2 CHEMOTHERAPY AGENTS FOR 6 MONTHS
  4. FLUOROURACIL [Suspect]
     Active Substance: FLUOROURACIL
     Indication: Adenocarcinoma of colon
  5. LEUCOVORIN CALCIUM [Suspect]
     Active Substance: LEUCOVORIN CALCIUM
     Indication: Adenocarcinoma of colon
     Dosage: PATIENT RECEIVED ADJUVANT CHEMOTHERAPY AND 3 CYCLES OF THE FOLINIC ACID
  6. LEUCOVORIN CALCIUM [Suspect]
     Active Substance: LEUCOVORIN CALCIUM
     Indication: Signet-ring cell carcinoma
  7. INFLIXIMAB [Concomitant]
     Active Substance: INFLIXIMAB
     Indication: Crohn^s disease
     Dosage: UNK

REACTIONS (3)
  - Necrosis ischaemic [Unknown]
  - Intestinal ischaemia [Unknown]
  - Abdominal adhesions [Unknown]
